FAERS Safety Report 4723137-6 (Version None)
Quarter: 2005Q3

REPORT INFORMATION
  Report Type: 
  Country: None (occurrence: None)
  Receive Date: 20050719
  Receipt Date: 20040714
  Transmission Date: 20060218
  Serious: Yes (Other)
  Sender: FDA-Public Use
  Company Number: 2004223644US

PATIENT

DRUGS (2)
  1. CELEBREX [Suspect]
  2. NI [Concomitant]

REACTIONS (1)
  - THROMBOCYTOPENIA [None]
